FAERS Safety Report 11689978 (Version 2)
Quarter: 2015Q4

REPORT INFORMATION
  Report Type: Spontaneous
  Country: JP (occurrence: JP)
  Receive Date: 20151102
  Receipt Date: 20151118
  Transmission Date: 20160304
  Serious: Yes (Hospitalization, Other)
  Sender: FDA-Public Use
  Company Number: JP-PFIZER INC-2015369174

PATIENT
  Age: 74 Year
  Sex: Male
  Weight: 51 kg

DRUGS (7)
  1. CAMPTO [Suspect]
     Active Substance: IRINOTECAN
     Indication: COLON CANCER
     Dosage: 231.2 MG, 1X/DAY (150 MG/M2)
     Route: 041
  2. 5-FU /00098801/ [Concomitant]
     Active Substance: FLUOROURACIL
     Dosage: UNK
     Route: 041
  3. AVASTIN [Concomitant]
     Active Substance: BEVACIZUMAB
     Indication: COLON CANCER
     Dosage: UNK
     Dates: start: 2011
  4. VECTIBIX [Concomitant]
     Active Substance: PANITUMUMAB
     Dosage: UNK
  5. LEVOFOLINATE [Suspect]
     Active Substance: LEVOLEUCOVORIN CALCIUM
     Indication: COLON CANCER
     Dosage: 308.2 MG, 1X/DAY (200 MG/M2)
     Route: 041
     Dates: start: 2011
  6. 5-FU /00098801/ [Concomitant]
     Active Substance: FLUOROURACIL
     Indication: COLON CANCER
     Dosage: UNK
     Route: 040
     Dates: start: 2011
  7. ELPLAT [Suspect]
     Active Substance: OXALIPLATIN
     Indication: COLON CANCER
     Dosage: 131 MG, 1X/DAY (85 MG/M2)
     Route: 041
     Dates: start: 2011

REACTIONS (3)
  - Pneumatosis intestinalis [Recovering/Resolving]
  - Drug hypersensitivity [Recovered/Resolved]
  - Malaise [Unknown]
